FAERS Safety Report 18416369 (Version 3)
Quarter: 2020Q4

REPORT INFORMATION
  Report Type: Spontaneous
  Country: FR (occurrence: FR)
  Receive Date: 20201022
  Receipt Date: 20201228
  Transmission Date: 20210114
  Serious: Yes (Other)
  Sender: FDA-Public Use
  Company Number: FR-MYLANLABS-2020M1088490

PATIENT
  Age: 28 Year
  Sex: Female

DRUGS (14)
  1. EVEROLIMUS. [Suspect]
     Active Substance: EVEROLIMUS
     Indication: TUBEROUS SCLEROSIS COMPLEX
     Dosage: 10 MILLIGRAM, DAILY
     Route: 048
     Dates: start: 2018
  2. TERCIAN                            /00759301/ [Suspect]
     Active Substance: CYAMEMAZINE
     Indication: SCHIZOPHRENIA
     Dosage: 50 MILLIGRAM, DAILY
     Route: 048
     Dates: start: 2018
  3. PAROXETINE ARROW [Suspect]
     Active Substance: PAROXETINE
     Dosage: 10 MILLIGRAM, DAILY (DOSE REDUCED)
     Route: 048
     Dates: start: 20200907
  4. PAROXETINE ARROW [Suspect]
     Active Substance: PAROXETINE
     Dosage: 5 MILLIGRAM DAILY
     Route: 048
     Dates: start: 202009
  5. HALDOL [Suspect]
     Active Substance: HALOPERIDOL
     Indication: SCHIZOPHRENIA
     Dosage: 5 MILLIGRAM, 3 TIMES A DAY
     Route: 048
     Dates: start: 2018
  6. TERCIAN                            /00759301/ [Suspect]
     Active Substance: CYAMEMAZINE
     Dosage: 25 MILLIGRAM, QD DAILY
     Route: 048
     Dates: start: 202009
  7. PAROXETINE ARROW [Suspect]
     Active Substance: PAROXETINE
     Indication: PRODUCT USED FOR UNKNOWN INDICATION
     Dosage: 20 MILLIGRAM, QD (DAILY)
     Dates: start: 2018
  8. LEPTICUR [Suspect]
     Active Substance: TROPATEPINE HYDROCHLORIDE
     Indication: PRODUCT USED FOR UNKNOWN INDICATION
     Dosage: 10 MILLIGRAM, DAILY
     Route: 048
     Dates: start: 2018
  9. LEXOMIL [Suspect]
     Active Substance: BROMAZEPAM
     Indication: HALLUCINATION
     Dosage: HALF TABLET
  10. EPITOMAX [Suspect]
     Active Substance: TOPIRAMATE
     Indication: EPILEPSY
     Dosage: 200 MILLIGRAM, ONCE A DAY IN THE MORNING
     Route: 048
     Dates: start: 2018
  11. EPITOMAX [Suspect]
     Active Substance: TOPIRAMATE
     Dosage: 200 MILLIGRAM, ONCE A DAY IN THE MORNING
     Route: 048
  12. EPITOMAX [Suspect]
     Active Substance: TOPIRAMATE
     Dosage: 100 MILLIGRAM, QD (ONCE A DAY IN THE MORNING)
     Route: 048
     Dates: start: 2018
  13. EVEROLIMUS. [Suspect]
     Active Substance: EVEROLIMUS
     Indication: ANGIOMYOLIPOMA
     Dosage: UNK
  14. ZEBINIX [Suspect]
     Active Substance: ESLICARBAZEPINE ACETATE
     Indication: EPILEPSY
     Dosage: UNK
     Route: 048
     Dates: start: 2018

REACTIONS (4)
  - Intentional product use issue [Unknown]
  - Amenorrhoea [Not Recovered/Not Resolved]
  - Hyperprolactinaemia [Recovering/Resolving]
  - Galactorrhoea [Not Recovered/Not Resolved]

NARRATIVE: CASE EVENT DATE: 202009
